FAERS Safety Report 9072041 (Version 2)
Quarter: 2013Q1

REPORT INFORMATION
  Report Type: Report from Study
  Country: FR (occurrence: FR)
  Receive Date: 20130129
  Receipt Date: 20130213
  Transmission Date: 20140127
  Serious: Yes (Death, Hospitalization)
  Sender: FDA-Public Use
  Company Number: FR-PFIZER INC-2013032018

PATIENT
  Age: 68 Year
  Sex: Female
  Weight: 62 kg

DRUGS (13)
  1. CRIZOTINIB [Suspect]
     Indication: NON-SMALL CELL LUNG CANCER
     Dosage: 250 MG, 2X/DAY
     Route: 048
     Dates: start: 20120809, end: 20121017
  2. ZOLPIDEM [Concomitant]
     Indication: INSOMNIA
     Dosage: 10 MG, 1X/DAY
     Route: 048
     Dates: start: 20120125
  3. CORTANCYL [Concomitant]
     Indication: BRAIN OEDEMA
     Dosage: 1 DF, 1X/DAY
     Route: 048
     Dates: start: 20120125
  4. CORTANCYL [Concomitant]
     Dosage: 20 MG, 3X/DAY
  5. PROZAC [Concomitant]
     Indication: DEPRESSION
     Dosage: 20 MG, 1X/DAY
     Route: 048
     Dates: start: 20120125
  6. EUPANTOL [Concomitant]
     Indication: ULCER
     Dosage: 40 MG, 1X/DAY
     Route: 048
     Dates: start: 20120425
  7. ALPRAZOLAM [Concomitant]
     Indication: ANXIOLYTIC THERAPY
     Dosage: 1 DF, 2X/DAY
     Route: 048
     Dates: start: 20120810
  8. OROCAL VITAMIN D [Concomitant]
     Indication: VITAMIN D
     Dosage: 1 DF, 1X/DAY
     Route: 048
     Dates: start: 20120810
  9. OROCAL VITAMIN D [Concomitant]
     Indication: BLOOD CALCIUM
  10. DIFFU K [Concomitant]
  11. CALCIDOSE VITAMINE D [Concomitant]
     Dosage: 500 MG, 1X/DAY
  12. MOVICOL [Concomitant]
     Dosage: 2 DF, 1X/DAY
  13. PRIMPERAN [Concomitant]
     Dosage: 10 MG, 3X/DAY

REACTIONS (3)
  - Drug-induced liver injury [Fatal]
  - Disease progression [Fatal]
  - Non-small cell lung cancer [Fatal]
